FAERS Safety Report 4381348-6 (Version None)
Quarter: 2004Q2

REPORT INFORMATION
  Report Type: 
  Country: None (occurrence: None)
  Receive Date: 20040617
  Receipt Date: 20040617
  Transmission Date: 20050107
  Serious: Yes (Death)
  Sender: FDA-Public Use
  Company Number: None

PATIENT
  Age: 73 Year
  Sex: Male
  Weight: 113.4 kg

DRUGS (7)
  1. GLUCOPHAGE XR [Suspect]
     Indication: DIABETES MELLITUS
     Dosage: 2 TABLETS BID PO
     Route: 048
     Dates: start: 20000801, end: 20040614
  2. HYZAAR [Concomitant]
  3. ZOLOFT [Concomitant]
  4. COUMADIN [Concomitant]
  5. DILTROPAN XL [Concomitant]
  6. VERAPAMIL [Concomitant]
  7. AMARYL [Concomitant]

REACTIONS (6)
  - ASTHENIA [None]
  - CHEST PAIN [None]
  - DYSPNOEA [None]
  - LACTIC ACIDOSIS [None]
  - METABOLIC ACIDOSIS [None]
  - SHOCK [None]
